FAERS Safety Report 7026721-2 (Version None)
Quarter: 2010Q3

REPORT INFORMATION
  Report Type: 
  Country: None (occurrence: None)
  Receive Date: 20100929
  Receipt Date: 20100921
  Transmission Date: 20110219
  Serious: Yes (Other)
  Sender: FDA-Public Use
  Company Number: JHP201000285

PATIENT
  Age: 32 Year
  Sex: Male

DRUGS (1)
  1. KETALAR [Suspect]
     Indication: DRUG ABUSE

REACTIONS (5)
  - BLADDER HYPERTROPHY [None]
  - CYSTITIS [None]
  - DRUG ABUSE [None]
  - REDUCED BLADDER CAPACITY [None]
  - SELF-MEDICATION [None]
